FAERS Safety Report 4792207-9 (Version None)
Quarter: 2005Q4

REPORT INFORMATION
  Report Type: 
  Country: None (occurrence: None)
  Receive Date: 20051006
  Receipt Date: 20050925
  Transmission Date: 20060501
  Serious: Yes (Other)
  Sender: FDA-Public Use
  Company Number: 2005S1000200

PATIENT
  Age: 37 Year
  Sex: Female

DRUGS (9)
  1. CUBICIN [Suspect]
     Indication: FEBRILE NEUTROPENIA
     Dosage: 6 MG/KG
  2. IDARUBICIN HCL [Concomitant]
  3. CYTARABINE [Concomitant]
  4. PIPERACILLIN SODIUM/TAZOBACTAM SODIUM [Concomitant]
  5. GENTAMICIN [Concomitant]
  6. VANCOMYCIN [Concomitant]
  7. AMPHOTERICIN B [Concomitant]
  8. ETOPOSIDE [Concomitant]
  9. MITOXANTRONE [Concomitant]

REACTIONS (8)
  - ASPERGILLOSIS [None]
  - BACTERAEMIA [None]
  - BONE MARROW TRANSPLANT [None]
  - ENTEROCOCCAL INFECTION [None]
  - LABORATORY TEST INTERFERENCE [None]
  - PATHOGEN RESISTANCE [None]
  - PYREXIA [None]
  - SINUSITIS [None]
